FAERS Safety Report 6857263-2 (Version None)
Quarter: 2010Q3

REPORT INFORMATION
  Report Type: 
  Country: None (occurrence: None)
  Receive Date: 20100719
  Receipt Date: 20100708
  Transmission Date: 20110219
  Serious: Yes (Other)
  Sender: FDA-Public Use
  Company Number: US-BAXTER-2010BH000830

PATIENT
  Age: 65 Year
  Sex: Female

DRUGS (6)
  1. DIANEAL [Suspect]
     Indication: PERITONEAL DIALYSIS
     Route: 033
     Dates: start: 20080101, end: 20091229
  2. DIANEAL [Suspect]
     Route: 033
     Dates: start: 20091229, end: 20100101
  3. DIANEAL [Suspect]
     Route: 033
     Dates: start: 20100101
  4. DIANEAL [Suspect]
     Indication: PERITONEAL DIALYSIS
     Route: 033
     Dates: start: 20080101, end: 20091229
  5. DIANEAL [Suspect]
     Route: 033
     Dates: start: 20091229, end: 20100101
  6. DIANEAL [Suspect]
     Route: 033
     Dates: start: 20100101

REACTIONS (1)
  - UMBILICAL HERNIA [None]
